FAERS Safety Report 12622809 (Version 2)
Quarter: 2016Q3

REPORT INFORMATION
  Report Type: Spontaneous
  Country: ZA (occurrence: ZA)
  Receive Date: 20160804
  Receipt Date: 20160809
  Transmission Date: 20161109
  Serious: Yes (Other)
  Sender: FDA-Public Use
  Company Number: ZA-JNJFOC-20160725809

PATIENT
  Sex: Female

DRUGS (1)
  1. VERMOX [Suspect]
     Active Substance: MEBENDAZOLE
     Indication: HELMINTHIC INFECTION
     Route: 048

REACTIONS (2)
  - Pyrexia [Recovered/Resolved]
  - Diarrhoea [Recovered/Resolved]
